FAERS Safety Report 6810636-6 (Version None)
Quarter: 2010Q2

REPORT INFORMATION
  Report Type: 
  Country: None (occurrence: None)
  Receive Date: 20100630
  Receipt Date: 20100618
  Transmission Date: 20101027
  Serious: Yes (Hospitalization, Other)
  Sender: FDA-Public Use
  Company Number: PHHY2009JP24305

PATIENT
  Sex: Female
  Weight: 43 kg

DRUGS (11)
  1. ICL670A ICL+DISTAB [Suspect]
     Indication: IRON OVERLOAD
     Dosage: 1000 MG/DAY
     Route: 048
     Dates: start: 20080806, end: 20080902
  2. ICL670A ICL+DISTAB [Suspect]
     Dosage: 1000 MG/DAY
     Route: 048
     Dates: start: 20080925, end: 20081020
  3. NEORAL [Suspect]
     Route: 048
  4. DESFERAL [Concomitant]
     Dosage: UNK
     Dates: start: 20060509, end: 20080805
  5. BASEN [Concomitant]
     Dosage: 0.9 MG, UNK
     Dates: start: 20051101, end: 20090408
  6. MERISLON [Concomitant]
     Dosage: 18 MG, UNK
     Route: 048
     Dates: start: 20051101, end: 20080923
  7. CARNACULIN [Concomitant]
     Dosage: 150 IU, UNK
     Route: 048
     Dates: start: 20051101, end: 20081020
  8. MAGMITT [Concomitant]
     Dosage: 1 G, UNK
     Route: 048
     Dates: start: 20051101
  9. URSO 250 [Concomitant]
     Dosage: 300 MG, UNK
     Route: 048
     Dates: start: 20080913, end: 20081103
  10. OMEPRAZOLE [Concomitant]
     Dosage: 20 MG, UNK
     Route: 048
     Dates: start: 20080909
  11. HALCION [Concomitant]
     Dosage: 0.25 MG, UNK
     Route: 048
     Dates: start: 20051101

REACTIONS (5)
  - BLOOD PRESSURE INCREASED [None]
  - HISTIOCYTOSIS HAEMATOPHAGIC [None]
  - LIVER DISORDER [None]
  - MALIGNANT NEOPLASM PROGRESSION [None]
  - SERUM FERRITIN INCREASED [None]
